FAERS Safety Report 7126178-7 (Version None)
Quarter: 2010Q4

REPORT INFORMATION
  Report Type: 
  Country: None (occurrence: None)
  Receive Date: 20101129
  Receipt Date: 20101115
  Transmission Date: 20110411
  Serious: Yes (Other)
  Sender: FDA-Public Use
  Company Number: JP-ASTRAZENECA-2010SE50350

PATIENT
  Age: 52 Year
  Sex: Male

DRUGS (5)
  1. BLOPRESS PLUS [Suspect]
     Indication: HYPERTENSION
     Dosage: 16/12.5 MG DAILY
     Route: 048
     Dates: start: 20060101, end: 20100801
  2. CAL D VITA [Concomitant]
     Indication: OSTEOPOROSIS
     Dosage: TWO TIMES A DAY
     Route: 048
  3. ACLASTA [Concomitant]
     Indication: OSTEOPOROSIS
     Route: 042
  4. ASPIRIN [Concomitant]
     Route: 048
  5. TESTOGEL [Concomitant]
     Route: 062

REACTIONS (1)
  - RENAL CELL CARCINOMA [None]
